FAERS Safety Report 9684112 (Version 1)
Quarter: 2013Q4

REPORT INFORMATION
  Report Type: Spontaneous
  Country: TR (occurrence: TR)
  Receive Date: 20131112
  Receipt Date: 20131112
  Transmission Date: 20140711
  Serious: Yes (Hospitalization)
  Sender: FDA-Public Use
  Company Number: PHHY2013TR126663

PATIENT
  Age: 47 Year
  Sex: Female

DRUGS (5)
  1. VALPROIC ACID [Suspect]
     Indication: BIPOLAR DISORDER
     Dosage: 1000 MG PER DAY
  2. PROPOFOL [Interacting]
  3. FLUPENTIXOL [Suspect]
     Indication: BIPOLAR DISORDER
     Dosage: 6 MG PER DAY
  4. QUETIAPINE [Suspect]
     Indication: BIPOLAR DISORDER
     Dosage: 9000 MG PER DAY
  5. QUETIAPINE [Suspect]
     Dosage: 600 MG PER DAY

REACTIONS (10)
  - Hyperammonaemic encephalopathy [Unknown]
  - Confusional state [Recovered/Resolved]
  - Disorientation [Recovered/Resolved]
  - Myoclonus [Recovered/Resolved]
  - Dysarthria [Recovered/Resolved]
  - Somnolence [Recovered/Resolved]
  - Ammonia increased [Unknown]
  - Drug level increased [Unknown]
  - Agitation [Unknown]
  - Drug ineffective [Unknown]
